FAERS Safety Report 13430954 (Version 1)
Quarter: 2017Q2

REPORT INFORMATION
  Report Type: Spontaneous
  Country: US (occurrence: US)
  Receive Date: 20170412
  Receipt Date: 20170412
  Transmission Date: 20170830
  Serious: Yes (Hospitalization)
  Sender: FDA-Public Use
  Company Number: US-ORION CORPORATION ORION PHARMA-TREX2016-2561

PATIENT
  Age: 61 Year
  Sex: Male

DRUGS (4)
  1. MERCAPTOPURINA [Suspect]
     Active Substance: MERCAPTOPURINE
     Indication: HAEMATOLOGICAL MALIGNANCY
     Route: 065
  2. CORTICOSTEROID NOS [Suspect]
     Active Substance: CORTICOSTEROID NOS
     Indication: HAEMATOLOGICAL MALIGNANCY
     Route: 065
  3. METHOTREXATE. [Suspect]
     Active Substance: METHOTREXATE
     Indication: HAEMATOLOGICAL MALIGNANCY
     Route: 065
  4. VINCRISTINE [Suspect]
     Active Substance: VINCRISTINE
     Indication: HAEMATOLOGICAL MALIGNANCY
     Route: 065

REACTIONS (1)
  - Pneumocystis jirovecii pneumonia [Unknown]
